FAERS Safety Report 22340934 (Version 1)
Quarter: 2023Q2

REPORT INFORMATION
  Report Type: Spontaneous
  Country: JP (occurrence: None)
  Receive Date: 20230518
  Receipt Date: 20230518
  Transmission Date: 20230722
  Serious: Yes (Hospitalization)
  Sender: FDA-Public Use
  Company Number: 2023A112172

PATIENT

DRUGS (2)
  1. EVUSHELD [Suspect]
     Active Substance: CILGAVIMAB\TIXAGEVIMAB
     Indication: COVID-19 prophylaxis
     Dosage: 600.0MG UNKNOWN
     Route: 030
  2. GAZYVA [Suspect]
     Active Substance: OBINUTUZUMAB
     Dosage: DOSE UNKNOWN

REACTIONS (1)
  - COVID-19 [Recovering/Resolving]
